FAERS Safety Report 13596518 (Version 1)
Quarter: 2017Q2

REPORT INFORMATION
  Report Type: Spontaneous
  Country: AR (occurrence: AR)
  Receive Date: 20170531
  Receipt Date: 20170531
  Transmission Date: 20170830
  Serious: Yes (Disabling)
  Sender: FDA-Public Use
  Company Number: PHHY2017AR069894

PATIENT
  Age: 71 Year
  Sex: Male

DRUGS (2)
  1. ASPIRIN. [Concomitant]
     Active Substance: ASPIRIN
     Indication: PRODUCT USED FOR UNKNOWN INDICATION
     Dosage: 0.5 DF, QD (HALF TABLET OF 100 MG PER DAY)
     Route: 065
  2. DIOVAN [Suspect]
     Active Substance: VALSARTAN
     Indication: BLOOD PRESSURE ABNORMAL
     Dosage: 80 MG, QD
     Route: 065

REACTIONS (8)
  - Intervertebral disc disorder [Not Recovered/Not Resolved]
  - Limb deformity [Unknown]
  - Mobility decreased [Unknown]
  - Joint swelling [Unknown]
  - Blood pressure diastolic decreased [Unknown]
  - Osteoarthritis [Not Recovered/Not Resolved]
  - Cardiac ventricular disorder [Unknown]
  - Asthenia [Unknown]

NARRATIVE: CASE EVENT DATE: 2009
